FAERS Safety Report 8912754 (Version 5)
Quarter: 2013Q1

REPORT INFORMATION
  Report Type: Report from Study
  Country: DE (occurrence: DE)
  Receive Date: 20121116
  Receipt Date: 20130307
  Transmission Date: 20140127
  Serious: Yes (Death, Other)
  Sender: FDA-Public Use
  Company Number: DE-ROCHE-1155013

PATIENT
  Age: 73 Year
  Sex: Male
  Weight: 73 kg

DRUGS (6)
  1. RITUXIMAB [Suspect]
     Indication: CHRONIC LYMPHOCYTIC LEUKAEMIA
     Dosage: 375 MG/M2, DCON 500 MG/M2
     Route: 042
     Dates: start: 20090907, end: 20091130
  2. RITUXIMAB [Suspect]
     Indication: THROMBOCYTOPENIA
     Route: 042
     Dates: start: 20120216, end: 20120308
  3. RITUXIMAB [Suspect]
     Route: 042
     Dates: start: 20090907, end: 20091130
  4. FLUDARABINE [Suspect]
     Indication: CHRONIC LYMPHOCYTIC LEUKAEMIA
     Dosage: LAST DOSE PRIOR TO EVENT ON 03/DEC/2009
     Route: 042
     Dates: start: 20090908, end: 20091203
  5. CYCLOPHOSPHAMIDE [Suspect]
     Indication: CHRONIC LYMPHOCYTIC LEUKAEMIA
     Dosage: LAST DOSE PRIOR TO EVENT ON 03/DEC/2009
     Route: 042
     Dates: start: 20090908, end: 20091203
  6. CYTARABINE [Concomitant]
     Route: 065
     Dates: start: 20120806, end: 20121019

REACTIONS (1)
  - Acute myeloid leukaemia [Fatal]
